FAERS Safety Report 13307219 (Version 2)
Quarter: 2017Q2

REPORT INFORMATION
  Report Type: Spontaneous
  Country: DE (occurrence: DE)
  Receive Date: 20170308
  Receipt Date: 20170505
  Transmission Date: 20170830
  Serious: Yes (Other)
  Sender: FDA-Public Use
  Company Number: DE-TEVA-745788GER

PATIENT
  Age: 31 Year
  Sex: Female
  Weight: 70.4 kg

DRUGS (1)
  1. COPAXONE [Suspect]
     Active Substance: GLATIRAMER ACETATE
     Indication: MULTIPLE SCLEROSIS
     Route: 058
     Dates: start: 20150908, end: 20160327

REACTIONS (3)
  - Exposure during pregnancy [Unknown]
  - Normal newborn [Unknown]
  - Caesarean section [Unknown]

NARRATIVE: CASE EVENT DATE: 20160301
